FAERS Safety Report 21841126 (Version 1)
Quarter: 2023Q1

REPORT INFORMATION
  Report Type: Spontaneous
  Country: FR (occurrence: FR)
  Receive Date: 20230110
  Receipt Date: 20230110
  Transmission Date: 20230417
  Serious: Yes (Hospitalization)
  Sender: FDA-Public Use
  Company Number: None

PATIENT
  Age: 3 Year
  Sex: Male

DRUGS (2)
  1. CLARITHROMYCIN [Suspect]
     Active Substance: CLARITHROMYCIN
     Indication: Ear infection
     Dosage: DURATION : 1 DAY
     Route: 065
     Dates: start: 20221202, end: 20221203
  2. CEFPODOXIME [Suspect]
     Active Substance: CEFPODOXIME
     Indication: Ear infection
     Dosage: DURATION : 4 DAY
     Route: 065
     Dates: start: 20221128, end: 20221202

REACTIONS (1)
  - Erythema multiforme [Recovering/Resolving]

NARRATIVE: CASE EVENT DATE: 20221203
